FAERS Safety Report 14935251 (Version 2)
Quarter: 2018Q2

REPORT INFORMATION
  Report Type: Spontaneous
  Country: NL (occurrence: NL)
  Receive Date: 20180524
  Receipt Date: 20180609
  Transmission Date: 20180711
  Serious: Yes (Other)
  Sender: FDA-Public Use
  Company Number: NL-TEVA-2018-NL-896884

PATIENT
  Age: 6 Week
  Sex: Male
  Weight: 4 kg

DRUGS (2)
  1. MORFINE [Concomitant]
     Active Substance: MORPHINE
     Route: 065
  2. OCTREOTIDE. [Suspect]
     Active Substance: OCTREOTIDE
     Indication: CHYLOTHORAX
     Route: 065
     Dates: start: 20180222, end: 20180319

REACTIONS (1)
  - Necrotising colitis [Recovering/Resolving]

NARRATIVE: CASE EVENT DATE: 20180316
